FAERS Safety Report 6357566-4 (Version None)
Quarter: 2009Q3

REPORT INFORMATION
  Report Type: 
  Country: None (occurrence: None)
  Receive Date: 20090916
  Receipt Date: 20090907
  Transmission Date: 20100115
  Serious: Yes (Hospitalization)
  Sender: FDA-Public Use
  Company Number: PHHY2009AU38300

PATIENT
  Sex: Male

DRUGS (4)
  1. CLOZARIL [Suspect]
     Dosage: 100 MG, QD
     Dates: start: 19940322
  2. CLOZARIL [Suspect]
     Dosage: 400 MG, QD
  3. CLOZARIL [Suspect]
     Dosage: 500 MG, QD
  4. CLOZARIL [Suspect]
     Dosage: 600 MG, QD

REACTIONS (2)
  - DIZZINESS [None]
  - FALL [None]
